FAERS Safety Report 18687766 (Version 1)
Quarter: 2020Q4

REPORT INFORMATION
  Report Type: Spontaneous
  Country: US (occurrence: US)
  Receive Date: 20201230
  Receipt Date: 20201230
  Transmission Date: 20210114
  Serious: Yes (Other)
  Sender: FDA-Public Use
  Company Number: None

PATIENT
  Age: 68 Year
  Sex: Female
  Weight: 42.75 kg

DRUGS (1)
  1. MISOPROSTROL CYTOTEC [Suspect]
     Active Substance: MISOPROSTOL
     Indication: INDUCTION OF CERVIX RIPENING
     Dosage: ?          QUANTITY:4 TABLET(S);OTHER FREQUENCY:EVENING AND AM;?
     Route: 067
     Dates: start: 20201209, end: 20201210

REACTIONS (8)
  - Flatulence [None]
  - Myalgia [None]
  - Abdominal pain [None]
  - Chills [None]
  - Pyrexia [None]
  - Headache [None]
  - Bedridden [None]
  - Asthenia [None]

NARRATIVE: CASE EVENT DATE: 20201210
